FAERS Safety Report 9800243 (Version 6)
Quarter: 2014Q1

REPORT INFORMATION
  Report Type: Report from Study
  Country: TR (occurrence: TR)
  Receive Date: 20140106
  Receipt Date: 20140325
  Transmission Date: 20141002
  Serious: Yes (Hospitalization)
  Sender: FDA-Public Use
  Company Number: TR-PFIZER INC-2013344156

PATIENT
  Age: 60 Year
  Sex: Male
  Weight: 100 kg

DRUGS (4)
  1. CORDARONE [Suspect]
     Indication: ATRIAL FIBRILLATION
     Dosage: 200 MG, UNK
     Route: 065
  2. BELOC [Suspect]
     Indication: ATRIAL FIBRILLATION
     Dosage: 25 MG, UNK
  3. COUMADINE [Suspect]
     Indication: ATRIAL FIBRILLATION
     Dosage: 5 MG, UNK
  4. COUMADINE [Suspect]
     Indication: ANTICOAGULANT THERAPY
     Dosage: 50 MG X 6, 25 MG X1

REACTIONS (3)
  - Cardiac failure [Unknown]
  - Arrhythmia [Unknown]
  - Hypertension [Unknown]
